FAERS Safety Report 9741054 (Version 2)
Quarter: 2013Q4

REPORT INFORMATION
  Report Type: Report from Study
  Country: US (occurrence: US)
  Receive Date: 20131209
  Receipt Date: 20131210
  Transmission Date: 20140711
  Serious: Yes (Hospitalization, Other)
  Sender: FDA-Public Use
  Company Number: US-TEVA-442029USA

PATIENT
  Age: 55 Year
  Sex: Male

DRUGS (13)
  1. COPAXONE [Suspect]
     Indication: MULTIPLE SCLEROSIS
     Dates: start: 20110205, end: 20131013
  2. PSEUDOEPHEDRINE [Concomitant]
     Indication: SEASONAL ALLERGY
  3. ATENOLOL [Concomitant]
  4. FLOMAX [Concomitant]
  5. FINASTERIDE [Concomitant]
  6. ROPINIROLE [Concomitant]
  7. FLONASE [Concomitant]
  8. METHOCARBAMOL [Concomitant]
  9. ACCUNEB [Concomitant]
  10. ADVAIR [Concomitant]
  11. BACLOFEN [Concomitant]
  12. NITROSTAT [Concomitant]
  13. PRAVASTATIN [Concomitant]

REACTIONS (4)
  - Immediate post-injection reaction [Recovered/Resolved]
  - Cardiac disorder [Unknown]
  - Arteriospasm coronary [Recovered/Resolved]
  - Myocardial infarction [Recovered/Resolved]
